FAERS Safety Report 10218236 (Version 2)
Quarter: 2014Q2

REPORT INFORMATION
  Report Type: Report from Study
  Country: IT (occurrence: IT)
  Receive Date: 20140605
  Receipt Date: 20140605
  Transmission Date: 20141212
  Serious: Yes (Other)
  Sender: FDA-Public Use
  Company Number: IT-ROCHE-1403171

PATIENT
  Age: 48 Year
  Sex: Female

DRUGS (1)
  1. VEMURAFENIB [Suspect]
     Indication: METASTATIC MALIGNANT MELANOMA
     Route: 065
     Dates: start: 201107

REACTIONS (5)
  - Squamous cell carcinoma [Unknown]
  - Lymphoproliferative disorder [Unknown]
  - Rash [Unknown]
  - Hyperkeratosis [Unknown]
  - Skin toxicity [Unknown]
